FAERS Safety Report 6535559-1 (Version None)
Quarter: 2010Q1

REPORT INFORMATION
  Report Type: 
  Country: None (occurrence: None)
  Receive Date: 20100113
  Receipt Date: 20100108
  Transmission Date: 20100710
  Serious: Yes (Death)
  Sender: FDA-Public Use
  Company Number: JP-ELI_LILLY_AND_COMPANY-JP200912004754

PATIENT
  Age: 69 Year
  Sex: Male

DRUGS (3)
  1. ALIMTA [Suspect]
     Indication: NON-SMALL CELL LUNG CANCER
     Dosage: 500 MG/M2, OTHER
     Route: 042
     Dates: start: 20091204, end: 20091204
  2. FOLIC ACID [Concomitant]
     Dosage: UNK, UNKNOWN
     Route: 065
  3. VITAMIN B-12 [Concomitant]
     Dosage: UNK, UNKNOWN
     Route: 065

REACTIONS (1)
  - MYOCARDIAL INFARCTION [None]
